FAERS Safety Report 4938452-0 (Version None)
Quarter: 2006Q1

REPORT INFORMATION
  Report Type: 
  Country: None (occurrence: None)
  Receive Date: 20060302
  Receipt Date: 20060217
  Transmission Date: 20060701
  Serious: Yes (Hospitalization, Other)
  Sender: FDA-Public Use
  Company Number: 2006JP000404

PATIENT
  Age: 58 Year
  Sex: Male

DRUGS (3)
  1. PROGRAF [Suspect]
     Indication: RENAL TRANSPLANT
     Dosage: 4  MG, D, ORAL; 4 MG, D, ORAL;
     Route: 048
  2. PREDNISOLONE [Suspect]
     Indication: RENAL TRANSPLANT
     Dosage: 10 MG, D, ORAL; 20 MG, D, IV NOS; 10 MG, D, ORAL
     Route: 048
  3. MIZORIBINE (MIZORIBINE) [Concomitant]

REACTIONS (3)
  - AORTIC ANEURYSM [None]
  - DIABETES MELLITUS [None]
  - KIDNEY TRANSPLANT REJECTION [None]
